FAERS Safety Report 23367205 (Version 3)
Quarter: 2025Q3

REPORT INFORMATION
  Report Type: Spontaneous
  Country: EU (occurrence: EU)
  Receive Date: 20240104
  Receipt Date: 20250819
  Transmission Date: 20251021
  Serious: Yes (Other)
  Sender: PFIZER
  Company Number: None

PATIENT
  Age: 16 Year
  Sex: Male

DRUGS (3)
  1. PANTOPRAZOLE [Interacting]
     Active Substance: PANTOPRAZOLE
     Indication: Prophylaxis against gastrointestinal ulcer
     Dosage: 40 MILLIGRAM, QD
     Route: 048
     Dates: start: 20231017, end: 20231031
  2. METHYLPHENIDATE [Interacting]
     Active Substance: METHYLPHENIDATE
     Indication: Attention deficit hyperactivity disorder
     Dosage: 20 MILLIGRAM, QD (CAPSULE, EXTENDED RELEASE)
     Route: 048
     Dates: start: 20230728, end: 20231019
  3. KETOPROFEN [Suspect]
     Active Substance: KETOPROFEN

REACTIONS (4)
  - Drug interaction [Recovered/Resolved]
  - Condition aggravated [Recovered/Resolved]
  - Drug interaction [Recovered/Resolved]
  - Condition aggravated [Unknown]

NARRATIVE: CASE EVENT DATE: 20231019
